FAERS Safety Report 18957342 (Version 1)
Quarter: 2021Q1

REPORT INFORMATION
  Report Type: Spontaneous
  Country: US (occurrence: US)
  Receive Date: 20210301
  Receipt Date: 20210301
  Transmission Date: 20210420
  Serious: Yes (Hospitalization)
  Sender: FDA-Public Use
  Company Number: None

PATIENT
  Age: 6 Year
  Sex: Male
  Weight: 18 kg

DRUGS (4)
  1. PROCYSBI [Suspect]
     Active Substance: CYSTEAMINE BITARTRATE
     Indication: CYSTINOSIS
     Route: 048
     Dates: start: 20181108, end: 20210209
  2. LEVOTHYROXINE. [Concomitant]
     Active Substance: LEVOTHYROXINE
     Dates: start: 20181123
  3. KLOR?CON [Concomitant]
     Active Substance: POTASSIUM CHLORIDE
     Dates: start: 20181123
  4. PHOSNAK [Concomitant]
     Dates: start: 20181123

REACTIONS (1)
  - Large intestine perforation [None]

NARRATIVE: CASE EVENT DATE: 20210209
